FAERS Safety Report 14497162 (Version 1)
Quarter: 2018Q1

REPORT INFORMATION
  Report Type: Spontaneous
  Country: NL (occurrence: NL)
  Receive Date: 20180207
  Receipt Date: 20180207
  Transmission Date: 20180509
  Serious: Yes (Life-Threatening, Hospitalization)
  Sender: FDA-Public Use
  Company Number: NL-ROCHE-2066744

PATIENT
  Age: 58 Year
  Sex: Female
  Weight: 119 kg

DRUGS (4)
  1. LEVOTHYROXINE. [Concomitant]
     Active Substance: LEVOTHYROXINE
     Route: 065
     Dates: start: 20150302
  2. RITUXIMAB. [Suspect]
     Active Substance: RITUXIMAB
     Indication: NEPHROTIC SYNDROME
     Dosage: 1000MG PER GIFT
     Route: 042
  3. PREDNISON [Concomitant]
     Active Substance: PREDNISONE
     Route: 050
     Dates: start: 20150504
  4. IRBESARTAN. [Concomitant]
     Active Substance: IRBESARTAN
     Route: 050
     Dates: start: 20150121

REACTIONS (1)
  - Pulmonary embolism [Recovering/Resolving]

NARRATIVE: CASE EVENT DATE: 20171203
